FAERS Safety Report 5019570-8 (Version None)
Quarter: 2006Q2

REPORT INFORMATION
  Report Type: 
  Country: None (occurrence: None)
  Receive Date: 20060531
  Receipt Date: 20060524
  Transmission Date: 20061013
  Serious: Yes (Hospitalization)
  Sender: FDA-Public Use
  Company Number: 200610111BFR

PATIENT
  Age: 49 Year
  Sex: Male
  Weight: 67 kg

DRUGS (25)
  1. SORAFENIB [Suspect]
     Indication: METASTATIC RENAL CELL CARCINOMA
     Dosage: SEE IMAGE
     Dates: start: 20050824, end: 20050918
  2. SORAFENIB [Suspect]
     Indication: METASTATIC RENAL CELL CARCINOMA
     Dosage: SEE IMAGE
     Dates: start: 20050922, end: 20051018
  3. SORAFENIB [Suspect]
     Indication: METASTATIC RENAL CELL CARCINOMA
     Dosage: SEE IMAGE
     Dates: start: 20051019, end: 20051213
  4. SORAFENIB [Suspect]
     Indication: METASTATIC RENAL CELL CARCINOMA
     Dosage: SEE IMAGE
     Dates: start: 20051213, end: 20060130
  5. SORAFENIB [Suspect]
     Indication: METASTATIC RENAL CELL CARCINOMA
     Dosage: SEE IMAGE
     Dates: start: 20060222
  6. SORAFENIB [Suspect]
  7. SORAFENIB [Suspect]
  8. CIBACENE [Concomitant]
  9. ZOXAN (DOXAZOSINE) [Concomitant]
  10. TRAVATAN [Concomitant]
  11. MORPHINE SULFATE [Concomitant]
  12. FORLAX [Concomitant]
  13. SYMBICORT [Concomitant]
  14. NEURONTIN [Concomitant]
  15. MOPRAL [Concomitant]
  16. SKENAN [Concomitant]
  17. DEXERYL ^PIERRE FABRE^ [Concomitant]
  18. EOSINE [Concomitant]
  19. SOLUPRED [Concomitant]
  20. BI-PROFENID [Concomitant]
  21. NEXIUM [Concomitant]
  22. RIVOTRIL [Concomitant]
  23. ACETAMINOPHEN [Concomitant]
  24. DUODERM [Concomitant]
  25. TPN [Concomitant]

REACTIONS (11)
  - ARTHROPATHY [None]
  - ATELECTASIS [None]
  - BALANCE DISORDER [None]
  - BRONCHIAL OBSTRUCTION [None]
  - DECREASED APPETITE [None]
  - EPIDURITIS [None]
  - FATIGUE [None]
  - GENERAL PHYSICAL HEALTH DETERIORATION [None]
  - LYMPHADENOPATHY [None]
  - PLEURAL EFFUSION [None]
  - WEIGHT DECREASED [None]
